FAERS Safety Report 8171155-0 (Version None)
Quarter: 2012Q1

REPORT INFORMATION
  Report Type: 
  Country: None (occurrence: None)
  Receive Date: 20120228
  Receipt Date: 20111109
  Transmission Date: 20120608
  Serious: No
  Sender: FDA-Public Use
  Company Number: US-BRISTOL-MYERS SQUIBB COMPANY-16223018

PATIENT
  Age: 83 Year
  Sex: Female
  Weight: 54 kg

DRUGS (7)
  1. ONGLYZA [Suspect]
     Dates: start: 20111001
  2. HYDROCHLOROTHIAZIDE [Concomitant]
  3. METOPROLOL [Concomitant]
  4. AMLODIPINE [Concomitant]
  5. METFORMIN HCL [Suspect]
  6. AVAPRO [Concomitant]
  7. GLIPIZIDE [Concomitant]

REACTIONS (1)
  - CONSTIPATION [None]
